FAERS Safety Report 8912952 (Version 5)
Quarter: 2013Q2

REPORT INFORMATION
  Report Type: Report from Study
  Country: AU (occurrence: AU)
  Receive Date: 20121116
  Receipt Date: 20130531
  Transmission Date: 20140414
  Serious: Yes (Other)
  Sender: FDA-Public Use
  Company Number: AU-JNJFOC-20121105645

PATIENT
  Sex: Female

DRUGS (3)
  1. STELARA [Suspect]
     Indication: PSORIASIS
     Route: 058
     Dates: start: 20120926
  2. STELARA [Suspect]
     Indication: PSORIASIS
     Route: 058
     Dates: start: 20100513
  3. OROXINE [Concomitant]

REACTIONS (3)
  - Colon cancer [Not Recovered/Not Resolved]
  - Metastases to liver [Not Recovered/Not Resolved]
  - Ovarian mass [Not Recovered/Not Resolved]
